FAERS Safety Report 4860318-5 (Version None)
Quarter: 2005Q4

REPORT INFORMATION
  Report Type: 
  Country: None (occurrence: None)
  Receive Date: 20051219
  Receipt Date: 20051209
  Transmission Date: 20060501
  Serious: Yes (Life-Threatening, Hospitalization, Other)
  Sender: FDA-Public Use
  Company Number: CH-ABBOTT-05P-151-0319141-00

PATIENT
  Age: 56 Year
  Sex: Male

DRUGS (7)
  1. NORVIR [Suspect]
     Indication: HIV INFECTION
     Route: 048
  2. DOCETAXEL [Interacting]
     Indication: LUNG CARCINOMA CELL TYPE UNSPECIFIED STAGE 0
     Route: 042
     Dates: start: 20050815, end: 20050815
  3. DOCETAXEL [Interacting]
  4. CISPLATIN [Concomitant]
     Indication: DRUG USE FOR UNKNOWN INDICATION
     Route: 042
  5. LAMIVUDINE + ZIDOVUDINE [Concomitant]
     Indication: DRUG USE FOR UNKNOWN INDICATION
     Route: 048
  6. PRAVASTATIN SODIUM [Concomitant]
     Indication: DRUG USE FOR UNKNOWN INDICATION
     Route: 048
  7. LORAZEPAM [Concomitant]
     Indication: DRUG USE FOR UNKNOWN INDICATION

REACTIONS (13)
  - AGRANULOCYTOSIS [None]
  - ANOREXIA [None]
  - ASTHENIA [None]
  - CANDIDIASIS [None]
  - COUGH [None]
  - DIARRHOEA [None]
  - DRUG INTERACTION [None]
  - GENERAL PHYSICAL HEALTH DETERIORATION [None]
  - LUNG CARCINOMA CELL TYPE UNSPECIFIED STAGE 0 [None]
  - MUCOSAL INFLAMMATION [None]
  - MUCOSAL ULCERATION [None]
  - PYREXIA [None]
  - THERAPEUTIC AGENT TOXICITY [None]
